FAERS Safety Report 15155155 (Version 1)
Quarter: 2018Q3

REPORT INFORMATION
  Report Type: Spontaneous
  Country: US (occurrence: US)
  Receive Date: 20180620
  Receipt Date: 20180620
  Transmission Date: 20181010
  Serious: Yes (Hospitalization)
  Sender: FDA-Public Use
  Company Number: None

PATIENT
  Sex: Male

DRUGS (19)
  1. RENVELA [Concomitant]
     Active Substance: SEVELAMER CARBONATE
  2. FINASTERIDE. [Concomitant]
     Active Substance: FINASTERIDE
  3. NEBULIZER [Concomitant]
     Active Substance: DEVICE
  4. HYDRALAZINE [Concomitant]
     Active Substance: HYDRALAZINE HYDROCHLORIDE
  5. FERROUS SULF [Concomitant]
     Active Substance: FERROUS SULFATE
  6. KIONEX [Concomitant]
     Active Substance: SODIUM POLYSTYRENE SULFONATE
  7. GABAPENTIN. [Concomitant]
     Active Substance: GABAPENTIN
  8. CARVEDILOL. [Concomitant]
     Active Substance: CARVEDILOL
  9. FOLIC ACID. [Concomitant]
     Active Substance: FOLIC ACID
  10. TAMSULOSIN [Concomitant]
     Active Substance: TAMSULOSIN
  11. FUROSEMIDE. [Concomitant]
     Active Substance: FUROSEMIDE
  12. PROCRIT [Suspect]
     Active Substance: ERYTHROPOIETIN
     Indication: CHRONIC KIDNEY DISEASE
     Route: 058
     Dates: start: 20160528
  13. VITAMIN D [Concomitant]
     Active Substance: CHOLECALCIFEROL
  14. ISOSORB [Concomitant]
  15. ANORO ELLIPTA [Concomitant]
     Active Substance: UMECLIDINIUM BROMIDE\VILANTEROL TRIFENATATE
  16. IPRATROPIUM [Concomitant]
     Active Substance: IPRATROPIUM
  17. FERROUS SULF [Concomitant]
     Active Substance: FERROUS SULFATE
  18. CHILD ASA [Concomitant]
  19. PREDNISONE. [Concomitant]
     Active Substance: PREDNISONE

REACTIONS (1)
  - Hospitalisation [None]
